FAERS Safety Report 19528865 (Version 1)
Quarter: 2021Q3

REPORT INFORMATION
  Report Type: Spontaneous
  Country: FR (occurrence: FR)
  Receive Date: 20210713
  Receipt Date: 20210713
  Transmission Date: 20211014
  Serious: Yes (Hospitalization, Other)
  Sender: FDA-Public Use
  Company Number: FR-CADILA HEALTHCARE LIMITED-FR-ZYDUS-067724

PATIENT

DRUGS (1)
  1. ATORVASTATIN [Suspect]
     Active Substance: ATORVASTATIN
     Indication: MYOCARDIAL INFARCTION
     Dosage: UNK
     Route: 065

REACTIONS (4)
  - Hepatic cytolysis [Recovered/Resolved]
  - Immune-mediated myositis [Recovered/Resolved]
  - Jessner^s lymphocytic infiltration [Recovered/Resolved]
  - Toxicity to various agents [Recovered/Resolved]
